FAERS Safety Report 13488659 (Version 2)
Quarter: 2017Q2

REPORT INFORMATION
  Report Type: Spontaneous
  Country: US (occurrence: US)
  Receive Date: 20170427
  Receipt Date: 20170614
  Transmission Date: 20170830
  Serious: Yes (Other)
  Sender: FDA-Public Use
  Company Number: US-WEST-WARD PHARMACEUTICALS CORP.-US-H14001-17-01209

PATIENT
  Age: 67 Year
  Sex: Female
  Weight: 105 kg

DRUGS (7)
  1. VITAMIN B12 [Concomitant]
     Active Substance: CYANOCOBALAMIN
     Route: 065
  2. LITHIUM. [Suspect]
     Active Substance: LITHIUM
     Indication: BIPOLAR I DISORDER
     Route: 048
     Dates: start: 20160420, end: 20160801
  3. LITHIUM. [Suspect]
     Active Substance: LITHIUM
     Indication: BIPOLAR I DISORDER
     Route: 048
     Dates: start: 20160801, end: 201609
  4. VITAMIN B12 [Concomitant]
     Active Substance: CYANOCOBALAMIN
     Route: 065
     Dates: start: 201608
  5. VITAMIN D [Concomitant]
     Active Substance: CHOLECALCIFEROL
     Indication: PRODUCT USED FOR UNKNOWN INDICATION
     Route: 065
     Dates: end: 201604
  6. VITAMIN D [Concomitant]
     Active Substance: CHOLECALCIFEROL
     Route: 065
     Dates: start: 20170106
  7. VITAMIN B12 [Concomitant]
     Active Substance: CYANOCOBALAMIN
     Indication: PRODUCT USED FOR UNKNOWN INDICATION
     Route: 065
     Dates: end: 201604

REACTIONS (50)
  - Dyspnoea [Unknown]
  - Diarrhoea [Unknown]
  - Fall [Recovered/Resolved]
  - Blood urine present [Unknown]
  - Gastrooesophageal reflux disease [Unknown]
  - Balance disorder [Unknown]
  - Oedema [Unknown]
  - Flank pain [Unknown]
  - Abdominal distension [Unknown]
  - Renal disorder [Unknown]
  - Hyperglycaemia [Unknown]
  - Heart rate irregular [Unknown]
  - Skin discolouration [Unknown]
  - Somnolence [Unknown]
  - Asthenia [Unknown]
  - Abdominal pain upper [Unknown]
  - Seasonal allergy [Unknown]
  - Palpitations [Unknown]
  - Vision blurred [Unknown]
  - Vitreous floaters [Unknown]
  - Feelings of worthlessness [Unknown]
  - Memory impairment [Unknown]
  - Blood pressure increased [Unknown]
  - Renal pain [Unknown]
  - Weight fluctuation [Unknown]
  - Therapy cessation [Recovered/Resolved]
  - Insomnia [Unknown]
  - Dizziness [Unknown]
  - Tremor [Unknown]
  - Fatigue [Unknown]
  - Brugada syndrome [Unknown]
  - Photosensitivity reaction [Unknown]
  - Hypoaesthesia [Unknown]
  - Hyperhidrosis [Unknown]
  - Mental impairment [Unknown]
  - Dysphoria [Unknown]
  - Disturbance in attention [Unknown]
  - Arthralgia [Unknown]
  - Joint stiffness [Unknown]
  - Tooth disorder [Unknown]
  - Weight increased [Unknown]
  - Antipsychotic drug level decreased [Recovered/Resolved]
  - Left ventricular hypertrophy [Unknown]
  - Joint swelling [Unknown]
  - Cyanosis [Unknown]
  - Thought blocking [Unknown]
  - Chromaturia [Unknown]
  - Fluid retention [Unknown]
  - Back pain [Unknown]
  - Alopecia [Unknown]

NARRATIVE: CASE EVENT DATE: 2016
